FAERS Safety Report 12281574 (Version 1)
Quarter: 2016Q2

REPORT INFORMATION
  Report Type: Spontaneous
  Country: US (occurrence: None)
  Receive Date: 20160418
  Receipt Date: 20160418
  Transmission Date: 20160815
  Serious: Yes (Disabling)
  Sender: FDA-Public Use
  Company Number: None

PATIENT
  Age: 67 Year
  Sex: Female
  Weight: 140.62 kg

DRUGS (7)
  1. LISINOPRIL. [Concomitant]
     Active Substance: LISINOPRIL
  2. B-12 SUPPLEMENT [Concomitant]
  3. MULTI-VITAMIN [Concomitant]
     Active Substance: .ALPHA.-TOCOPHEROL ACETATE, DL-\ASCORBIC ACID\CYANOCOBALAMIN\FLUORIDE ION\FOLIC ACID\NIACIN\PYRIDOXINE\RIBOFLAVIN\THIAMINE\VITAMIN A\VITAMIN D
  4. VITAMIN D [Concomitant]
     Active Substance: CHOLECALCIFEROL
  5. CIPROFLOXICIN 500 MG [Suspect]
     Active Substance: CIPROFLOXACIN
     Indication: WOUND INFECTION STAPHYLOCOCCAL
     Route: 048
  6. CIPROFLOXICIN 500 MG [Suspect]
     Active Substance: CIPROFLOXACIN
     Indication: PROPHYLAXIS
     Route: 048
  7. METOPROLOL TARTRATE. [Concomitant]
     Active Substance: METOPROLOL TARTRATE

REACTIONS (13)
  - Fatigue [None]
  - Wheelchair user [None]
  - Hypoaesthesia [None]
  - Walking aid user [None]
  - Bone pain [None]
  - Dysstasia [None]
  - Musculoskeletal pain [None]
  - Pain [None]
  - Asthenia [None]
  - Pain in extremity [None]
  - Feeling cold [None]
  - Myalgia [None]
  - Joint range of motion decreased [None]

NARRATIVE: CASE EVENT DATE: 20150924
